FAERS Safety Report 9424716 (Version 2)
Quarter: 2013Q3

REPORT INFORMATION
  Report Type: Report from Study
  Country: DE (occurrence: DE)
  Receive Date: 20130729
  Receipt Date: 20130813
  Transmission Date: 20140515
  Serious: Yes (Death)
  Sender: FDA-Public Use
  Company Number: DE-UCBSA-092547

PATIENT
  Age: 60 Year
  Sex: Male

DRUGS (7)
  1. CIMZIA [Suspect]
     Indication: RHEUMATOID ARTHRITIS
     Dates: start: 201006, end: 201012
  2. ETANERCEPT [Concomitant]
     Dates: start: 201004, end: 201005
  3. ETANERCEPT [Concomitant]
     Dates: start: 200612, end: 200702
  4. ETANERCEPT [Concomitant]
     Dates: start: 200506, end: 200609
  5. METHOTREXATE [Concomitant]
     Route: 048
     Dates: start: 200802
  6. METHOTREXATE [Concomitant]
     Dates: start: 200301, end: 200310
  7. TOCILIZUMAB [Concomitant]
     Dates: start: 201103

REACTIONS (3)
  - Small cell lung cancer [Fatal]
  - Bronchopneumonia [Unknown]
  - Hypertension [Unknown]
